FAERS Safety Report 5782166-4 (Version None)
Quarter: 2008Q2

REPORT INFORMATION
  Report Type: 
  Country: None (occurrence: None)
  Receive Date: 20080623
  Receipt Date: 20080613
  Transmission Date: 20081010
  Serious: Yes (Death)
  Sender: FDA-Public Use
  Company Number: US-ABBOTT-08P-163-0454872-00

PATIENT
  Sex: Female

DRUGS (2)
  1. KALETRA [Suspect]
     Indication: DRUG EXPOSURE DURING PREGNANCY
     Route: 064
  2. LAMIVUDINE + ZIDOVUDINE [Suspect]
     Indication: DRUG EXPOSURE DURING PREGNANCY
     Route: 064

REACTIONS (3)
  - CHORIOAMNIONITIS [None]
  - DRUG EXPOSURE DURING PREGNANCY [None]
  - LOCALISED OEDEMA [None]
